FAERS Safety Report 10502924 (Version 1)
Quarter: 2014Q4

REPORT INFORMATION
  Report Type: Spontaneous
  Country: MY (occurrence: MY)
  Receive Date: 20141007
  Receipt Date: 20141007
  Transmission Date: 20150528
  Serious: Yes (Hospitalization)
  Sender: FDA-Public Use
  Company Number: MY-PFIZER INC-2014272977

PATIENT
  Age: 21 Year
  Sex: Female

DRUGS (1)
  1. CELECOXIB. [Suspect]
     Active Substance: CELECOXIB
     Indication: ABORTION
     Dosage: 4 DF, UNK

REACTIONS (3)
  - Off label use [Unknown]
  - Abortion [Unknown]
  - Abdominal pain upper [Unknown]
